FAERS Safety Report 5335260-6 (Version None)
Quarter: 2007Q2

REPORT INFORMATION
  Report Type: 
  Country: None (occurrence: None)
  Receive Date: 20070525
  Receipt Date: 20070515
  Transmission Date: 20071010
  Serious: Yes (Other)
  Sender: FDA-Public Use
  Company Number: US-PFIZER INC-2007024223

PATIENT
  Sex: Female
  Weight: 59 kg

DRUGS (3)
  1. GEODON [Suspect]
     Indication: DEPRESSION
  2. GEODON [Suspect]
     Indication: ANXIETY DISORDER
  3. GEODON [Suspect]
     Indication: BIPOLAR DISORDER

REACTIONS (7)
  - AMNESIA [None]
  - DEPRESSION [None]
  - DISSOCIATION [None]
  - DISSOCIATIVE DISORDER [None]
  - MANIA [None]
  - SOMNOLENCE [None]
  - SUICIDAL IDEATION [None]
